FAERS Safety Report 6474539-1 (Version None)
Quarter: 2009Q4

REPORT INFORMATION
  Report Type: 
  Country: None (occurrence: None)
  Receive Date: 20091204
  Receipt Date: 20091124
  Transmission Date: 20100525
  Serious: Yes (Other)
  Sender: FDA-Public Use
  Company Number: US-PFIZER INC-2006121135

PATIENT
  Sex: Female

DRUGS (28)
  1. LIPITOR [Suspect]
     Indication: BLOOD CHOLESTEROL INCREASED
     Dosage: UNK
     Dates: start: 20060101
  2. LIPITOR [Suspect]
     Dosage: UNK
  3. CRESTOR [Suspect]
     Indication: BLOOD CHOLESTEROL INCREASED
     Dosage: UNK
  4. PRILOSEC [Suspect]
     Dosage: UNK MG, 2X/DAY
     Dates: start: 20000101
  5. PRILOSEC [Suspect]
     Dosage: 20 MG 2X/DAY,
     Route: 048
  6. ADVAIR DISKUS 100/50 [Suspect]
     Dosage: UNK
  7. CLARITIN [Suspect]
     Dosage: UNK
  8. NIASPAN [Suspect]
     Dosage: UNK
  9. TRICOR [Suspect]
     Dosage: UNK
  10. FORADIL [Concomitant]
     Dosage: UNK
  11. MOMETASONE FUROATE [Concomitant]
     Dosage: UNK
  12. NORVASC [Concomitant]
  13. BENADRYL [Concomitant]
  14. LEVOTHYROXINE SODIUM [Concomitant]
     Dosage: 112 UG, 1X/DAY
     Route: 048
  15. PRO-AIR [Concomitant]
     Dosage: 108 UG, UNK
     Route: 055
  16. MUCINEX [Concomitant]
     Dosage: FREQUENCY: 2X/DAY,
     Route: 048
  17. CYANOCOBALAMIN [Concomitant]
     Dosage: 1000 UG, Q2W
     Dates: start: 20090623
  18. AVAPRO [Concomitant]
     Dosage: 300 MG, 1X/DAY
     Route: 048
     Dates: start: 20070312
  19. AVAPRO [Concomitant]
     Dosage: UNK
     Dates: start: 20090824
  20. SPIRIVA [Concomitant]
     Dosage: 18 UG, 1X/DAY
     Dates: start: 20070312
  21. OSCAL 500-D [Concomitant]
     Dosage: 500/200, 2X/DAY
     Dates: start: 20070312
  22. PHENAZOPYRIDINE HCL TAB [Concomitant]
     Dosage: 1 DF, 3X/DAY PRN
     Route: 048
     Dates: start: 20070312
  23. NIFEDIPINE [Concomitant]
     Dosage: 30 MG, 1X/DAY
     Route: 048
     Dates: start: 20080429
  24. NIFEDIPINE [Concomitant]
     Dosage: 30 MG, 1X/DAY
     Dates: start: 20090722
  25. SPIRONOLACTONE [Concomitant]
     Dosage: 25 MG, 1X/DAY
     Route: 048
     Dates: start: 20080610
  26. SPIRONOLACTONE [Concomitant]
     Dosage: 25 MG, 1X/DAY
     Route: 048
     Dates: start: 20090824
  27. NASONEX [Concomitant]
     Dosage: 2 PUFFS, 1X/DAY IN EN
     Route: 045
  28. COLACE [Concomitant]
     Dosage: 100 MG, 2X/DAY PRN
     Route: 048
     Dates: start: 20080909

REACTIONS (26)
  - ANAEMIA VITAMIN B12 DEFICIENCY [None]
  - ARTERIAL OCCLUSIVE DISEASE [None]
  - ASTHENIA [None]
  - ASTHMA [None]
  - BLOOD CREATINE PHOSPHOKINASE INCREASED [None]
  - CONCUSSION [None]
  - DYSPHONIA [None]
  - FLUSHING [None]
  - GASTROOESOPHAGEAL REFLUX DISEASE [None]
  - GLUCOSE TOLERANCE IMPAIRED [None]
  - HEPATIC STEATOSIS [None]
  - HYPERLIPIDAEMIA [None]
  - HYPERSENSITIVITY [None]
  - HYPERTENSION [None]
  - HYPOCHONDRIASIS [None]
  - HYPOTHYROIDISM [None]
  - IRON DEFICIENCY ANAEMIA [None]
  - MUSCLE SPASMS [None]
  - MYALGIA [None]
  - NECK PAIN [None]
  - OSTEOARTHRITIS [None]
  - OSTEOPENIA [None]
  - RHINITIS ALLERGIC [None]
  - STRESS URINARY INCONTINENCE [None]
  - TINNITUS [None]
  - VITAMIN D DEFICIENCY [None]
